FAERS Safety Report 4926169-8 (Version None)
Quarter: 2006Q1

REPORT INFORMATION
  Report Type: 
  Country: None (occurrence: None)
  Receive Date: 20060228
  Receipt Date: 20050901
  Transmission Date: 20060701
  Serious: No
  Sender: FDA-Public Use
  Company Number: US-GLAXOSMITHKLINE-A0572760A

PATIENT
  Age: 25 Year
  Sex: Female

DRUGS (4)
  1. LAMICTAL [Suspect]
     Indication: BIPOLAR DISORDER
     Route: 048
     Dates: start: 20050808, end: 20050822
  2. GEODON [Concomitant]
  3. TRILEPTAL [Concomitant]
  4. IBUPROFEN [Concomitant]

REACTIONS (1)
  - RASH GENERALISED [None]
